FAERS Safety Report 6945673-4 (Version None)
Quarter: 2010Q3

REPORT INFORMATION
  Report Type: 
  Country: None (occurrence: None)
  Receive Date: 20100819
  Receipt Date: 20100728
  Transmission Date: 20110219
  Serious: Yes (Hospitalization, Other)
  Sender: FDA-Public Use
  Company Number: 015950

PATIENT
  Sex: Female

DRUGS (10)
  1. XYREM [Suspect]
     Indication: NARCOLEPSY
     Dosage: 2.25 BID, NIGHTLY ORAL, 3.75 G BID, NIGHTLY ORAL, 4.5 G BID, NIGHTLY ORAL
     Route: 048
     Dates: start: 20100101, end: 20100101
  2. XYREM [Suspect]
     Indication: NARCOLEPSY
     Dosage: 2.25 BID, NIGHTLY ORAL, 3.75 G BID, NIGHTLY ORAL, 4.5 G BID, NIGHTLY ORAL
     Route: 048
     Dates: start: 20100628, end: 20100101
  3. XYREM [Suspect]
     Indication: NARCOLEPSY
     Dosage: 2.25 BID, NIGHTLY ORAL, 3.75 G BID, NIGHTLY ORAL, 4.5 G BID, NIGHTLY ORAL
     Route: 048
     Dates: start: 20100101
  4. ACETAMINOPHEN AND HYDROCODONE BITARTRATE [Suspect]
     Indication: ANKLE FRACTURE
     Dosage: ONCE
     Dates: start: 20100715, end: 20100715
  5. ACETAMINOPHEN AND HYDROCODONE BITARTRATE [Suspect]
     Indication: PAIN
     Dosage: ONCE
     Dates: start: 20100715, end: 20100715
  6. VALSARTAN [Concomitant]
  7. ESTROGENS [Concomitant]
  8. MONTELUKAST SODIUM [Concomitant]
  9. AMITRIPTYLINE HYDROCHLORIDE [Concomitant]
  10. DEXTROAMPHETAMINE [Concomitant]

REACTIONS (5)
  - ANKLE FRACTURE [None]
  - ARTHRALGIA [None]
  - DEEP VEIN THROMBOSIS [None]
  - JOINT SWELLING [None]
  - PRURITUS [None]
